FAERS Safety Report 5808830-6 (Version None)
Quarter: 2008Q3

REPORT INFORMATION
  Report Type: 
  Country: None (occurrence: None)
  Receive Date: 20080714
  Receipt Date: 20080711
  Transmission Date: 20090109
  Serious: Yes (Hospitalization, Other)
  Sender: FDA-Public Use
  Company Number: B0529012A

PATIENT
  Age: 73 Year
  Sex: Male

DRUGS (7)
  1. DILATREND [Suspect]
     Indication: DRUG USE FOR UNKNOWN INDICATION
     Dosage: 12MG UNKNOWN
     Route: 048
     Dates: end: 20080530
  2. SEROQUEL [Suspect]
     Indication: DRUG USE FOR UNKNOWN INDICATION
     Route: 048
     Dates: start: 20070601, end: 20080530
  3. ASPIRIN [Concomitant]
  4. AMLODIPINE [Concomitant]
  5. COVERSUM [Concomitant]
  6. DEPAKENE [Concomitant]
  7. NEURONTIN [Concomitant]

REACTIONS (5)
  - ATRIOVENTRICULAR BLOCK SECOND DEGREE [None]
  - BRADYCARDIA [None]
  - DRUG INTERACTION [None]
  - FALL [None]
  - GRAND MAL CONVULSION [None]
